FAERS Safety Report 5370708-2 (Version None)
Quarter: 2007Q2

REPORT INFORMATION
  Report Type: 
  Country: None (occurrence: None)
  Receive Date: 20070626
  Receipt Date: 20070614
  Transmission Date: 20071010
  Serious: Yes (Life-Threatening, Hospitalization)
  Sender: FDA-Public Use
  Company Number: DE-PURDUE-DEU_2007_0003316

PATIENT
  Age: 65 Year
  Sex: Female
  Weight: 72 kg

DRUGS (1)
  1. MST 30 MG MUNDIPHARMA [Suspect]
     Indication: NEURALGIA
     Dosage: 60 MG, TID
     Route: 048
     Dates: start: 20060101

REACTIONS (4)
  - CONFUSIONAL STATE [None]
  - ELECTROCARDIOGRAM ABNORMAL [None]
  - HYPOKALAEMIA [None]
  - METABOLIC ALKALOSIS [None]
